FAERS Safety Report 5468514-3 (Version None)
Quarter: 2007Q3

REPORT INFORMATION
  Report Type: 
  Country: None (occurrence: None)
  Receive Date: 20070926
  Receipt Date: 20070802
  Transmission Date: 20080115
  Serious: No
  Sender: FDA-Public Use
  Company Number: US-BRISTOL-MYERS SQUIBB COMPANY-13866892

PATIENT
  Age: 31 Year
  Sex: Female
  Weight: 113 kg

DRUGS (3)
  1. ORENCIA [Suspect]
     Indication: RHEUMATOID ARTHRITIS
     Route: 042
  2. METHOTREXATE BRAND UNKNOWN [Concomitant]
  3. FOLIC ACID [Concomitant]

REACTIONS (2)
  - HYPOAESTHESIA [None]
  - PARAESTHESIA [None]
